FAERS Safety Report 11031293 (Version 1)
Quarter: 2015Q2

REPORT INFORMATION
  Report Type: Spontaneous
  Country: US (occurrence: US)
  Receive Date: 20150415
  Receipt Date: 20150415
  Transmission Date: 20150821
  Serious: No
  Sender: FDA-Public Use
  Company Number: US-PFIZER INC-2015122139

PATIENT
  Age: 63 Year
  Sex: Male
  Weight: 107 kg

DRUGS (4)
  1. GABAPENTIN. [Suspect]
     Active Substance: GABAPENTIN
     Dosage: 1800 MG, 2X/DAY (600 MG THREE IN THE MORNING AND THREE IN THE NIGHT)
  2. GABAPENTIN. [Suspect]
     Active Substance: GABAPENTIN
     Indication: PAIN IN EXTREMITY
     Dosage: 2X/DAY (600 MG TABLET ONE IN MORNING TWO IN THE NIGHT)
  3. GABAPENTIN. [Suspect]
     Active Substance: GABAPENTIN
     Dosage: 1200 MG, 2X/DAY (600 MG TWO IN THE MORNING AND TWO IN THE NIGHT)
  4. GABAPENTIN. [Suspect]
     Active Substance: GABAPENTIN
     Indication: DIABETIC NEUROPATHY
     Dosage: 600 MG, DAILY

REACTIONS (1)
  - Drug ineffective for unapproved indication [Unknown]
